FAERS Safety Report 7868180-3 (Version None)
Quarter: 2011Q4

REPORT INFORMATION
  Report Type: 
  Country: None (occurrence: None)
  Receive Date: 20111028
  Receipt Date: 20111020
  Transmission Date: 20120403
  Serious: Yes (Other)
  Sender: FDA-Public Use
  Company Number: CA-ROCHE-GNE301554

PATIENT
  Sex: Male
  Weight: 83.089 kg

DRUGS (9)
  1. XOLAIR [Suspect]
     Dosage: 375 MG, Q2W
     Route: 058
     Dates: start: 20091127
  2. ANTIBIOTICS (NOT SPECIFIED) [Concomitant]
     Indication: PRODUCT USED FOR UNKNOWN INDICATION
  3. XOLAIR [Suspect]
     Dosage: 375 MG, Q2W
     Route: 058
     Dates: start: 20090703
  4. PREDNISONE [Concomitant]
     Dosage: 15 MG, UNK
  5. XOLAIR [Suspect]
     Dosage: 375 MG, Q2W
     Route: 058
     Dates: start: 20090928
  6. PREDNISONE [Concomitant]
     Indication: PRODUCT USED FOR UNKNOWN INDICATION
     Dosage: 50 MG, UNK
  7. PREDNISONE [Concomitant]
     Dosage: 10 MG, UNK
  8. XOLAIR [Suspect]
     Indication: ASTHMA
     Dosage: 375 MG, Q2W
     Route: 058
     Dates: start: 20090123
  9. PREDNISONE [Concomitant]
     Dosage: 30 MG, UNK

REACTIONS (11)
  - POLYP [None]
  - INCREASED UPPER AIRWAY SECRETION [None]
  - PULMONARY CONGESTION [None]
  - SINUS CONGESTION [None]
  - UPPER-AIRWAY COUGH SYNDROME [None]
  - EAR DISCOMFORT [None]
  - OTITIS MEDIA [None]
  - RESPIRATORY DISORDER [None]
  - NASAL CONGESTION [None]
  - RHINORRHOEA [None]
  - INCREASED VISCOSITY OF BRONCHIAL SECRETION [None]
